FAERS Safety Report 7937799-3 (Version None)
Quarter: 2011Q4

REPORT INFORMATION
  Report Type: 
  Country: None (occurrence: None)
  Receive Date: 20111123
  Receipt Date: 20111114
  Transmission Date: 20120403
  Serious: Yes (Hospitalization)
  Sender: FDA-Public Use
  Company Number: ES-ABBOTT-10P-144-0654807-00

PATIENT
  Age: 55 Year
  Sex: Female
  Weight: 49 kg

DRUGS (4)
  1. MESALAMINE [Concomitant]
     Indication: CROHN'S DISEASE
  2. AMOXICILLIN [Concomitant]
     Indication: PRODUCT USED FOR UNKNOWN INDICATION
     Route: 048
     Dates: start: 20100526, end: 20100602
  3. HUMIRA [Suspect]
     Indication: CROHN'S DISEASE
     Route: 058
     Dates: start: 20090713
  4. METHYLPREDNISOLONE [Concomitant]
     Indication: CROHN'S DISEASE
     Dates: start: 20100324

REACTIONS (1)
  - CROHN'S DISEASE [None]
